FAERS Safety Report 9115611 (Version 1)
Quarter: 2013Q1

REPORT INFORMATION
  Report Type: Spontaneous
  Country: US (occurrence: US)
  Receive Date: 20130225
  Receipt Date: 20130225
  Transmission Date: 20140127
  Serious: Yes (Other)
  Sender: FDA-Public Use
  Company Number: US-BRISTOL-MYERS SQUIBB COMPANY-16353013

PATIENT
  Age: 48 Year
  Sex: Female
  Weight: 50 kg

DRUGS (1)
  1. KENALOG-10 INJ [Suspect]
     Indication: HAIR GROWTH ABNORMAL
     Dosage: APPROXIMATELY 6-7 MONTHS AGO STARTED THE INJ?PAST 3 MONTHS, RECEIVED 2 TIMES EACH MONTH?5ML VIAL
     Dates: start: 2011

REACTIONS (3)
  - Depression [Unknown]
  - Alopecia [Unknown]
  - Weight decreased [Unknown]
